FAERS Safety Report 21575974 (Version 1)
Quarter: 2022Q4

REPORT INFORMATION
  Report Type: Spontaneous
  Country: US (occurrence: US)
  Receive Date: 20221110
  Receipt Date: 20221110
  Transmission Date: 20230113
  Serious: Yes (Other)
  Sender: FDA-Public Use
  Company Number: US-PFIZER INC-202201286926

PATIENT
  Age: 24 Year
  Sex: Female

DRUGS (4)
  1. METHOTREXATE SODIUM [Suspect]
     Active Substance: METHOTREXATE SODIUM
     Indication: Chorioretinal disorder
     Dosage: UNK
  2. METHOTREXATE SODIUM [Suspect]
     Active Substance: METHOTREXATE SODIUM
     Indication: Subretinal fibrosis
  3. INFLIXIMAB [Concomitant]
     Active Substance: INFLIXIMAB
     Indication: Chorioretinal disorder
     Dosage: UNK
  4. INFLIXIMAB [Concomitant]
     Active Substance: INFLIXIMAB
     Indication: Subretinal fibrosis

REACTIONS (2)
  - Drug intolerance [Unknown]
  - Off label use [Unknown]
